FAERS Safety Report 6450765-2 (Version None)
Quarter: 2009Q4

REPORT INFORMATION
  Report Type: 
  Country: None (occurrence: None)
  Receive Date: 20091123
  Receipt Date: 20091117
  Transmission Date: 20100525
  Serious: Yes (Hospitalization)
  Sender: FDA-Public Use
  Company Number: US-GENENTECH-294605

PATIENT
  Sex: Female
  Weight: 60.9 kg

DRUGS (6)
  1. BEVACIZUMAB [Suspect]
     Indication: GLIOBLASTOMA MULTIFORME
     Dosage: 10 MG/KG, ^D1 OF WKS 4+6^
     Route: 042
     Dates: start: 20090917
  2. BEVACIZUMAB [Suspect]
     Dosage: 10 MG/KG, ^D1 OF WK 2^
     Route: 042
  3. BEVACIZUMAB [Suspect]
     Dosage: 10 MG/KG, DAYS 1+15
     Route: 042
     Dates: end: 20091015
  4. RADIATION THERAPY [Suspect]
     Indication: GLIOBLASTOMA MULTIFORME
     Dosage: 2 GY, 5/WEEK
     Dates: start: 20090917, end: 20091008
  5. TEMOZOLOMIDE [Suspect]
     Indication: GLIOBLASTOMA MULTIFORME
     Dosage: 75 MG/M2, QD
     Route: 048
     Dates: start: 20090917
  6. TEMOZOLOMIDE [Suspect]
     Dosage: 150 MG/M2, ^DAYS 1-5^
     Route: 048
     Dates: end: 20091008

REACTIONS (1)
  - ENCEPHALITIC INFECTION [None]
